FAERS Safety Report 5922894-0 (Version None)
Quarter: 2008Q4

REPORT INFORMATION
  Report Type: 
  Country: None (occurrence: None)
  Receive Date: 20081017
  Receipt Date: 20081007
  Transmission Date: 20090506
  Serious: Yes (Congenital Anomaly, Other)
  Sender: FDA-Public Use
  Company Number: FR-ABBOTT-08P-056-0480406-00

PATIENT
  Age: 0 Day
  Sex: Female

DRUGS (1)
  1. DEPAKENE [Suspect]
     Indication: DRUG EXPOSURE DURING PREGNANCY
     Route: 064

REACTIONS (11)
  - CONGENITAL EYE DISORDER [None]
  - CONGENITAL NOSE MALFORMATION [None]
  - CONGENITAL ORAL MALFORMATION [None]
  - DEVELOPMENTAL DELAY [None]
  - DRUG EXPOSURE DURING PREGNANCY [None]
  - DYSMORPHISM [None]
  - EAR MALFORMATION [None]
  - FEEDING DISORDER NEONATAL [None]
  - ORAL DISORDER [None]
  - POOR WEIGHT GAIN NEONATAL [None]
  - SPEECH DISORDER DEVELOPMENTAL [None]
